FAERS Safety Report 4309535-3 (Version None)
Quarter: 2004Q1

REPORT INFORMATION
  Report Type: 
  Country: None (occurrence: None)
  Receive Date: 20040301
  Receipt Date: 20040223
  Transmission Date: 20041129
  Serious: Yes (Other)
  Sender: FDA-Public Use
  Company Number: 2004-02-0584

PATIENT
  Age: 59 Year
  Sex: Female

DRUGS (7)
  1. CLARITIN ALLERGY 24 HR REDITABS (LORATADINE) RAPIDLY-DISINEGRATING TAB [Suspect]
     Indication: HYPERSENSITIVITY
     Dosage: ORAL
     Route: 048
     Dates: start: 20040201
  2. RHINOCORT [Concomitant]
  3. ALLOPURINOL [Concomitant]
  4. PREMARIN [Concomitant]
  5. SYNTHROID [Concomitant]
  6. GUAIFENESIN [Concomitant]
  7. ZYRTEC [Concomitant]

REACTIONS (3)
  - OEDEMA PERIPHERAL [None]
  - RENAL FAILURE [None]
  - URINARY RETENTION [None]
